FAERS Safety Report 7938899-4 (Version None)
Quarter: 2011Q4

REPORT INFORMATION
  Report Type: 
  Country: None (occurrence: None)
  Receive Date: 20111124
  Receipt Date: 20111121
  Transmission Date: 20120403
  Serious: Yes (Other)
  Sender: FDA-Public Use
  Company Number: CHPA2011US016539

PATIENT
  Sex: Male

DRUGS (2)
  1. THERAFLU DAYTIME SEVERE COLD + COUGH [Suspect]
     Dosage: 1 DF, ONCE/SINGLE
     Route: 048
     Dates: start: 20111121, end: 20111121
  2. THERAFLU DAYTIME SEVERE COLD + COUGH [Suspect]
     Indication: NASOPHARYNGITIS
     Dosage: UNK DF, UNK
     Route: 048

REACTIONS (1)
  - DIABETES MELLITUS [None]
